FAERS Safety Report 6991299-6 (Version None)
Quarter: 2010Q3

REPORT INFORMATION
  Report Type: 
  Country: None (occurrence: None)
  Receive Date: 20100916
  Receipt Date: 20081104
  Transmission Date: 20110219
  Serious: No
  Sender: FDA-Public Use
  Company Number: US-WYE-H06665608

PATIENT
  Sex: Female

DRUGS (2)
  1. RAPAMUNE [Suspect]
     Indication: LIVER TRANSPLANT
     Route: 048
     Dates: start: 20080701, end: 20081029
  2. PROGRAF [Concomitant]
     Dosage: UNKNOWN
     Route: 065

REACTIONS (3)
  - ASTHENIA [None]
  - MUSCLE TWITCHING [None]
  - SENSATION OF HEAVINESS [None]
